FAERS Safety Report 7965573-0 (Version None)
Quarter: 2011Q4

REPORT INFORMATION
  Report Type: 
  Country: None (occurrence: None)
  Receive Date: 20111208
  Receipt Date: 20111206
  Transmission Date: 20120403
  Serious: Yes (Other)
  Sender: FDA-Public Use
  Company Number: US-MERCK-1103USA00950

PATIENT
  Age: 55 Year
  Sex: Female

DRUGS (8)
  1. FOSAMAX [Suspect]
     Indication: OSTEOPOROSIS
     Route: 048
     Dates: start: 19950101, end: 20090101
  2. POTASSIUM CHLORIDE [Concomitant]
     Indication: CARDIAC DISORDER
     Route: 048
     Dates: start: 19900101
  3. PYRIDOXINE [Concomitant]
     Indication: CARDIAC DISORDER
     Route: 048
     Dates: start: 19900101
  4. CYANOCOBALAMIN [Concomitant]
     Route: 048
     Dates: start: 19900101
  5. LEVOTHYROXINE SODIUM [Concomitant]
     Indication: HYPOTHYROIDISM
     Route: 048
     Dates: start: 19900101
  6. FUROSEMIDE [Concomitant]
     Indication: FLUID RETENTION
     Route: 048
     Dates: start: 19900101
  7. FOSAMAX [Suspect]
     Route: 048
     Dates: start: 19950101, end: 20090101
  8. CYANOCOBALAMIN [Concomitant]
     Indication: ASTHENIA
     Route: 048
     Dates: start: 19900101

REACTIONS (27)
  - HYPERSENSITIVITY [None]
  - EXOSTOSIS [None]
  - FRACTURE [None]
  - BACK PAIN [None]
  - ABDOMINAL DISCOMFORT [None]
  - ARTHRALGIA [None]
  - BLOOD CHOLESTEROL INCREASED [None]
  - CARDIAC DISORDER [None]
  - OSTEONECROSIS OF JAW [None]
  - ADVERSE DRUG REACTION [None]
  - SLEEP DISORDER [None]
  - GOUT [None]
  - FLUID RETENTION [None]
  - HYPERTENSION [None]
  - ARTHRITIS [None]
  - ALOPECIA [None]
  - STRESS [None]
  - ORAL INFECTION [None]
  - ANGIOPATHY [None]
  - CARDIAC FAILURE CONGESTIVE [None]
  - ABSCESS ORAL [None]
  - CARPAL TUNNEL SYNDROME [None]
  - TOOTH FRACTURE [None]
  - MASTOID ABSCESS [None]
  - SPONDYLITIS [None]
  - BONE DISORDER [None]
  - TOOTH DISORDER [None]
